FAERS Safety Report 16473695 (Version 1)
Quarter: 2019Q2

REPORT INFORMATION
  Report Type: Spontaneous
  Country: US (occurrence: US)
  Receive Date: 20190515
  Receipt Date: 20190515
  Transmission Date: 20190711
  Serious: Yes (Life-Threatening, Disabling, Other)
  Sender: FDA-Public Use
  Company Number: None

PATIENT
  Age: 36 Year
  Sex: Female
  Weight: 88.45 kg

DRUGS (8)
  1. HAIR SKIN + NAILS, JOINT [Concomitant]
  2. TRAZODONE [Concomitant]
     Active Substance: TRAZODONE HYDROCHLORIDE
  3. ZOLOFT [Concomitant]
     Active Substance: SERTRALINE HYDROCHLORIDE
  4. FOLLISTIM AQ [Suspect]
     Active Substance: FOLLITROPIN
  5. LUPRON [Suspect]
     Active Substance: LEUPROLIDE ACETATE
     Indication: IN VITRO FERTILISATION
     Dosage: 1MG/0.2ML 20 UNITS 1ST 2 WEEKS, 10 UNITS 2ND 2 WEEKS, 2X A DAY, INJECTION
  6. CLONAZEPAM. [Concomitant]
     Active Substance: CLONAZEPAM
  7. MULTI VITAMINS [Concomitant]
     Active Substance: VITAMINS
  8. WELLBUTRIN [Concomitant]
     Active Substance: BUPROPION HYDROCHLORIDE

REACTIONS (10)
  - Loose tooth [None]
  - Bone disorder [None]
  - Scar [None]
  - Pain [None]
  - Calcium deficiency [None]
  - Muscle disorder [None]
  - Skin exfoliation [None]
  - Liver injury [None]
  - Pemphigoid [None]
  - Protein deficiency [None]

NARRATIVE: CASE EVENT DATE: 2009
